FAERS Safety Report 9341404 (Version 1)
Quarter: 2013Q2

REPORT INFORMATION
  Report Type: Spontaneous
  Country: US (occurrence: US)
  Receive Date: 20130611
  Receipt Date: 20130611
  Transmission Date: 20140414
  Serious: Yes (Other)
  Sender: FDA-Public Use
  Company Number: US-BAYER-2013-068620

PATIENT
  Age: 32 Year
  Sex: Female

DRUGS (1)
  1. MIRENA [Suspect]
     Indication: OVARIAN CYST
     Dosage: 20 MCG/24HR, CONT
     Route: 015
     Dates: start: 201206, end: 20130530

REACTIONS (4)
  - Genital haemorrhage [None]
  - Pelvic pain [None]
  - Device dislocation [None]
  - Off label use [None]
